FAERS Safety Report 4679621-7 (Version None)
Quarter: 2005Q2

REPORT INFORMATION
  Report Type: 
  Country: None (occurrence: None)
  Receive Date: 20050602
  Receipt Date: 20050523
  Transmission Date: 20051028
  Serious: Yes (Other)
  Sender: FDA-Public Use
  Company Number: GB-ABBOTT-05P-167-0301311-00

PATIENT
  Age: 27 Year
  Sex: Male

DRUGS (4)
  1. KLARICID [Suspect]
     Indication: LOWER RESPIRATORY TRACT INFECTION
     Route: 048
     Dates: start: 20050506, end: 20050509
  2. SERETIDE EVOHALER [Concomitant]
     Indication: ASTHMA
     Route: 055
  3. SALBUTAMOL [Concomitant]
     Indication: ASTHMA
     Route: 055
  4. LORATADINE [Concomitant]
     Indication: SEASONAL ALLERGY
     Route: 048

REACTIONS (4)
  - ABDOMINAL PAIN [None]
  - DIARRHOEA [None]
  - FAECAL INCONTINENCE [None]
  - URINARY INCONTINENCE [None]
